FAERS Safety Report 21556191 (Version 1)
Quarter: 2022Q4

REPORT INFORMATION
  Report Type: Spontaneous
  Country: US (occurrence: None)
  Receive Date: 20221103
  Receipt Date: 20221103
  Transmission Date: 20230113
  Serious: No
  Sender: FDA-Public Use
  Company Number: None

PATIENT
  Sex: Female

DRUGS (1)
  1. DOFETILIDE [Suspect]
     Active Substance: DOFETILIDE
     Indication: Atrial fibrillation
     Dosage: FREQUENCY : TWICE A DAY;?
     Route: 048
     Dates: start: 20220202, end: 20221004

REACTIONS (6)
  - Urticaria [None]
  - Pruritus [None]
  - Rash erythematous [None]
  - Therapy cessation [None]
  - Nightmare [None]
  - Hypersensitivity [None]
